FAERS Safety Report 5492318-9 (Version None)
Quarter: 2007Q4

REPORT INFORMATION
  Report Type: 
  Country: None (occurrence: None)
  Receive Date: 20071015
  Receipt Date: 20070725
  Transmission Date: 20080405
  Serious: No
  Sender: FDA-Public Use
  Company Number: 2007SP002639

PATIENT
  Age: 59 Year
  Sex: Female
  Weight: 81.6475 kg

DRUGS (5)
  1. LUNESTA [Suspect]
     Indication: INSOMNIA
     Dosage: 2 MG; ORAL
     Route: 048
     Dates: start: 20070723
  2. LACTULOSE [Concomitant]
  3. PRILOSEC [Concomitant]
  4. XANAX [Concomitant]
  5. VICOPROFEN [Concomitant]

REACTIONS (1)
  - DYSGEUSIA [None]
